FAERS Safety Report 10473768 (Version 1)
Quarter: 2014Q3

REPORT INFORMATION
  Report Type: Spontaneous
  Country: BR (occurrence: BR)
  Receive Date: 20140924
  Receipt Date: 20140924
  Transmission Date: 20150326
  Serious: Yes (Other)
  Sender: FDA-Public Use
  Company Number: PHHY2014BR121257

PATIENT
  Age: 57 Year
  Sex: Male

DRUGS (8)
  1. LORMETAZEPAM [Concomitant]
     Active Substance: LORMETAZEPAM
     Dosage: 1 DF, QD
  2. MIRTAZAPINE. [Suspect]
     Active Substance: MIRTAZAPINE
     Dosage: 15 DF, QD (MORNING)
  3. TAMSULOSIN [Concomitant]
     Active Substance: TAMSULOSIN
     Dosage: 1 DF, QD
  4. OMEPRAZOLE. [Concomitant]
     Active Substance: OMEPRAZOLE
     Dosage: 1 DF, QD
  5. CHLORPROMAZINE [Interacting]
     Active Substance: CHLORPROMAZINE
     Dosage: 1 DF, TID
  6. MIRTAZAPINE. [Interacting]
     Active Substance: MIRTAZAPINE
     Dosage: 30 MG, QD (NIGHT)
  7. ALPRAZOLAM. [Concomitant]
     Active Substance: ALPRAZOLAM
     Dosage: 1 DF, TID
  8. ENALAPRIL [Concomitant]
     Active Substance: ENALAPRIL
     Dosage: 1 DF, QD

REACTIONS (9)
  - Tachycardia [Recovering/Resolving]
  - Bruxism [Recovering/Resolving]
  - Hyperthermia [Recovering/Resolving]
  - Serotonin syndrome [Unknown]
  - Drug interaction [Unknown]
  - Hypertension [Recovering/Resolving]
  - Dry mouth [Recovering/Resolving]
  - Oral pain [Unknown]
  - Nasopharyngitis [Unknown]
